FAERS Safety Report 6165154-8 (Version None)
Quarter: 2009Q2

REPORT INFORMATION
  Report Type: 
  Country: None (occurrence: None)
  Receive Date: 20090423
  Receipt Date: 20090414
  Transmission Date: 20091009
  Serious: Yes (Hospitalization)
  Sender: FDA-Public Use
  Company Number: US-ELI_LILLY_AND_COMPANY-US200904003508

PATIENT
  Sex: Female
  Weight: 81.633 kg

DRUGS (7)
  1. BYETTA [Suspect]
     Indication: TYPE 2 DIABETES MELLITUS
     Dosage: 5 UG, 2/D
     Route: 058
     Dates: start: 20050101, end: 20050101
  2. BYETTA [Suspect]
     Dosage: 10 UG, 2/D
     Route: 058
     Dates: start: 20050101, end: 20060101
  3. BYETTA [Suspect]
     Dosage: 5 MG, 2/D
     Route: 058
     Dates: start: 20060101
  4. LANTUS [Concomitant]
     Indication: TYPE 2 DIABETES MELLITUS
  5. MULTIVITAMIN [Concomitant]
  6. CRESTOR [Concomitant]
     Indication: BLOOD CHOLESTEROL
  7. NEXIUM [Concomitant]
     Indication: REFLUX OESOPHAGITIS

REACTIONS (13)
  - BLOOD GLUCOSE DECREASED [None]
  - BLOOD GLUCOSE INCREASED [None]
  - CATARACT [None]
  - DISORIENTATION [None]
  - DIZZINESS [None]
  - GASTROOESOPHAGEAL REFLUX DISEASE [None]
  - GOITRE [None]
  - INCORRECT DOSE ADMINISTERED [None]
  - INJECTION SITE HAEMATOMA [None]
  - INJECTION SITE PAIN [None]
  - NAUSEA [None]
  - TREMOR [None]
  - WEIGHT DECREASED [None]
